FAERS Safety Report 12247538 (Version 1)
Quarter: 2016Q2

REPORT INFORMATION
  Report Type: Report from Study
  Country: US (occurrence: US)
  Receive Date: 20160407
  Receipt Date: 20160407
  Transmission Date: 20160815
  Serious: Yes (Hospitalization)
  Sender: FDA-Public Use
  Company Number: US-GILEAD-2016-0206449

PATIENT
  Age: 52 Year
  Sex: Female

DRUGS (1)
  1. IDELALISIB [Suspect]
     Active Substance: IDELALISIB
     Indication: NEOPLASM
     Dosage: 150 MG, BID
     Route: 048
     Dates: start: 20151202

REACTIONS (2)
  - Unevaluable event [Unknown]
  - Pyrexia [Unknown]
